FAERS Safety Report 8312886-9 (Version None)
Quarter: 2012Q2

REPORT INFORMATION
  Report Type: 
  Country: None (occurrence: None)
  Receive Date: 20120426
  Receipt Date: 20120418
  Transmission Date: 20120825
  Serious: Yes (Hospitalization, Other)
  Sender: FDA-Public Use
  Company Number: US-BAYER-2011-114286

PATIENT
  Age: 24 Year
  Sex: Female
  Weight: 91 kg

DRUGS (1)
  1. YASMIN [Suspect]
     Indication: CONTRACEPTION
     Dosage: UNK
     Dates: start: 20050101, end: 20060701

REACTIONS (7)
  - SYSTEMIC LUPUS ERYTHEMATOSUS [None]
  - THROMBOPHLEBITIS [None]
  - DEEP VEIN THROMBOSIS [None]
  - PAIN [None]
  - FATIGUE [None]
  - INJURY [None]
  - ANXIETY [None]
